FAERS Safety Report 6295828-X (Version None)
Quarter: 2009Q3

REPORT INFORMATION
  Report Type: 
  Country: None (occurrence: None)
  Receive Date: 20090804
  Receipt Date: 20090723
  Transmission Date: 20100115
  Serious: Yes (Hospitalization)
  Sender: FDA-Public Use
  Company Number: US-BAYER-200924353NA

PATIENT
  Age: 66 Year
  Sex: Female
  Weight: 86 kg

DRUGS (1)
  1. AVELOX [Suspect]
     Indication: OROPHARYNGEAL PAIN
     Dates: start: 20090205

REACTIONS (24)
  - ASTHENIA [None]
  - BALANCE DISORDER [None]
  - BLOOD CREATININE ABNORMAL [None]
  - COUGH [None]
  - DEHYDRATION [None]
  - DEPRESSED LEVEL OF CONSCIOUSNESS [None]
  - DYSPNOEA [None]
  - HAEMATURIA [None]
  - HEADACHE [None]
  - MENTAL DISORDER [None]
  - NAUSEA [None]
  - PAIN [None]
  - PHARYNGITIS [None]
  - PROTEINURIA [None]
  - PYREXIA [None]
  - RASH ERYTHEMATOUS [None]
  - RASH PRURITIC [None]
  - RENAL FAILURE ACUTE [None]
  - TACHYCARDIA [None]
  - THROMBOCYTOPENIA [None]
  - TUBULOINTERSTITIAL NEPHRITIS [None]
  - URINARY TRACT INFECTION [None]
  - URTICARIA [None]
  - VIRAL RASH [None]
